FAERS Safety Report 6457492-6 (Version None)
Quarter: 2009Q4

REPORT INFORMATION
  Report Type: 
  Country: None (occurrence: None)
  Receive Date: 20091125
  Receipt Date: 20091112
  Transmission Date: 20100525
  Serious: Yes (Hospitalization)
  Sender: FDA-Public Use
  Company Number: PHHY2009VE47451

PATIENT
  Sex: Female

DRUGS (4)
  1. ACLASTA [Suspect]
     Indication: OSTEOPOROSIS
     Dosage: 5 MG/ YEAR
     Route: 042
  2. CALCIUM [Concomitant]
     Dosage: ONCE A DAY
     Route: 065
  3. NEURONTIN [Concomitant]
     Dosage: ONCE A DAY
     Route: 065
  4. AMARYL [Concomitant]
     Route: 065

REACTIONS (3)
  - DISCOMFORT [None]
  - MYOCARDIAL INFARCTION [None]
  - PAIN IN EXTREMITY [None]
